FAERS Safety Report 4717660-8 (Version None)
Quarter: 2005Q3

REPORT INFORMATION
  Report Type: 
  Country: None (occurrence: None)
  Receive Date: 20050713
  Receipt Date: 20050328
  Transmission Date: 20060218
  Serious: Yes (Other)
  Sender: FDA-Public Use
  Company Number: 378183

PATIENT
  Age: 60 Year
  Sex: Male
  Weight: 80.7 kg

DRUGS (9)
  1. FUZEON [Suspect]
     Indication: HIV INFECTION
     Dosage: 90 MG 2 PER DAY
     Dates: start: 20040504
  2. FUZEON [Suspect]
  3. TRICOR [Concomitant]
  4. GLYBURIDE [Concomitant]
  5. ZIAGEN [Concomitant]
  6. REYATAZ (ATAZANVIR) [Concomitant]
  7. GLUCOPHATE (METFORMIN) [Concomitant]
  8. CELEBREX [Concomitant]
  9. PRAVACHOL [Concomitant]

REACTIONS (3)
  - DEPRESSION [None]
  - HYPERGLYCAEMIA [None]
  - MOBILITY DECREASED [None]
